FAERS Safety Report 6489686-8 (Version None)
Quarter: 2009Q4

REPORT INFORMATION
  Report Type: 
  Country: None (occurrence: None)
  Receive Date: 20091207
  Receipt Date: 20091119
  Transmission Date: 20100525
  Serious: Yes (Hospitalization, Disabling, Other)
  Sender: FDA-Public Use
  Company Number: 2009AL007457

PATIENT
  Age: 57 Year
  Sex: Male

DRUGS (7)
  1. FEVERALL [Suspect]
     Route: 054
  2. HUMIRA [Concomitant]
  3. MELOXICAM [Concomitant]
  4. ETORICOXID [Concomitant]
  5. PARACETAMOL [Concomitant]
  6. IBUPROFEN [Concomitant]
  7. FLUOXETINE [Concomitant]

REACTIONS (23)
  - ANKYLOSING SPONDYLITIS [None]
  - ARTHRALGIA [None]
  - BONE PAIN [None]
  - CONDITION AGGRAVATED [None]
  - DEPRESSED MOOD [None]
  - DEPRESSION [None]
  - EMOTIONAL DISTRESS [None]
  - FEELING ABNORMAL [None]
  - FEELING HOT [None]
  - FEELING OF DESPAIR [None]
  - GENERAL PHYSICAL HEALTH DETERIORATION [None]
  - IMPAIRED WORK ABILITY [None]
  - JOINT RANGE OF MOTION DECREASED [None]
  - MENTAL DISORDER [None]
  - MYALGIA [None]
  - NIGHT SWEATS [None]
  - OVERDOSE [None]
  - PELVIC PAIN [None]
  - SPINAL DISORDER [None]
  - STRESS [None]
  - SUICIDAL IDEATION [None]
  - SUICIDE ATTEMPT [None]
  - WITHDRAWAL SYNDROME [None]
